APPROVED DRUG PRODUCT: FLUCONAZOLE
Active Ingredient: FLUCONAZOLE
Strength: 50MG
Dosage Form/Route: TABLET;ORAL
Application: A208963 | Product #001 | TE Code: AB
Applicant: ZYDUS PHARMACEUTICALS USA INC
Approved: Feb 16, 2017 | RLD: No | RS: No | Type: RX